FAERS Safety Report 8957835 (Version 1)
Quarter: 2012Q4

REPORT INFORMATION
  Report Type: 
  Country: CO (occurrence: CO)
  Receive Date: 20121210
  Receipt Date: 20121210
  Transmission Date: 20130627
  Serious: Yes (Hospitalization, Other)
  Sender: FDA-Public Use
  Company Number: CO-PFIZER INC-2012309959

PATIENT
  Age: 84 Year
  Sex: Female

DRUGS (6)
  1. LYRICA [Suspect]
     Indication: PAIN
     Dosage: 75 mg, 1x/day
     Route: 048
     Dates: start: 2007
  2. VALSARTAN [Concomitant]
     Indication: HYPERTENSION
     Dosage: 40 mg, 1x/day
     Route: 048
     Dates: start: 2005
  3. LANSOPRAZOL [Concomitant]
     Indication: GASTRITIS
     Dosage: 20 mg, 2x/day
     Route: 048
  4. FLUOXETINE [Concomitant]
     Indication: DEPRESSION
     Dosage: 5 mg, 2x/day
     Route: 048
  5. CHLOROTHIAZIDE [Concomitant]
     Indication: HYPERTENSION
     Dosage: 5 mg, UNK
  6. ACETYLSALICYLIC ACID [Concomitant]
     Indication: COAGULATION DISORDER
     Dosage: 100 mg, UNK

REACTIONS (3)
  - Urinary tract infection [Unknown]
  - Insomnia [Unknown]
  - Gait disturbance [Unknown]
